FAERS Safety Report 24765856 (Version 2)
Quarter: 2025Q1

REPORT INFORMATION
  Report Type: Spontaneous
  Country: EE (occurrence: EE)
  Receive Date: 20241223
  Receipt Date: 20250103
  Transmission Date: 20250409
  Serious: Yes (Hospitalization, Other)
  Sender: ABBVIE
  Company Number: EE-ABBVIE-6054852

PATIENT
  Age: 76 Year
  Sex: Female
  Weight: 60 kg

DRUGS (2)
  1. SKYRIZI [Suspect]
     Active Substance: RISANKIZUMAB-RZAA
     Indication: Crohn^s disease
     Route: 042
     Dates: start: 20241213, end: 20241213
  2. APIXABAN [Concomitant]
     Active Substance: APIXABAN
     Indication: Pulmonary embolism
     Route: 048
     Dates: start: 20241202

REACTIONS (5)
  - Atrial fibrillation [Recovered/Resolved]
  - Troponin increased [Unknown]
  - C-reactive protein increased [Unknown]
  - Blood potassium decreased [Unknown]
  - Prohormone brain natriuretic peptide increased [Unknown]

NARRATIVE: CASE EVENT DATE: 20241213
